FAERS Safety Report 4718923-2 (Version None)
Quarter: 2005Q3

REPORT INFORMATION
  Report Type: 
  Country: None (occurrence: None)
  Receive Date: 20050719
  Receipt Date: 20050706
  Transmission Date: 20060218
  Serious: Yes (Death, Other)
  Sender: FDA-Public Use
  Company Number: 2005099156

PATIENT
  Sex: Female
  Weight: 66.8 kg

DRUGS (1)
  1. DALTEPARIN SODIUM [Suspect]
     Indication: ILL-DEFINED DISORDER

REACTIONS (2)
  - HAEMORRHAGE [None]
  - INCORRECT DOSE ADMINISTERED [None]
